FAERS Safety Report 11120259 (Version 1)
Quarter: 2015Q2

REPORT INFORMATION
  Report Type: Spontaneous
  Country: US (occurrence: US)
  Receive Date: 20150518
  Receipt Date: 20150518
  Transmission Date: 20150821
  Serious: Yes (Death, Other)
  Sender: FDA-Public Use
  Company Number: US-ASTRAZENECA-2014SE66436

PATIENT
  Age: 882 Month
  Sex: Female

DRUGS (29)
  1. ASPIRIN. [Concomitant]
     Active Substance: ASPIRIN
  2. CALCIUM [Concomitant]
     Active Substance: CALCIUM
  3. VYTORIN [Concomitant]
     Active Substance: EZETIMIBE\SIMVASTATIN
  4. NEXIUM [Concomitant]
     Active Substance: ESOMEPRAZOLE MAGNESIUM
  5. BYETTA [Suspect]
     Active Substance: EXENATIDE
     Route: 065
     Dates: start: 20120706
  6. TRENTAL [Concomitant]
     Active Substance: PENTOXIFYLLINE
  7. HUMALOG [Concomitant]
     Active Substance: INSULIN LISPRO
  8. MAGNESIUM [Concomitant]
     Active Substance: MAGNESIUM
  9. CENTRUM [Concomitant]
     Active Substance: VITAMINS
  10. HYDROCODONE [Concomitant]
     Active Substance: HYDROCODONE
  11. METFORMIN HYDROCHLORIDE. [Concomitant]
     Active Substance: METFORMIN HYDROCHLORIDE
  12. ONDANSETRON [Concomitant]
     Active Substance: ONDANSETRON
  13. SPIRIVA [Concomitant]
     Active Substance: TIOTROPIUM BROMIDE MONOHYDRATE
  14. VITAMIN B12 [Concomitant]
     Active Substance: CYANOCOBALAMIN
  15. COZAAR [Concomitant]
     Active Substance: LOSARTAN POTASSIUM
  16. ZYRTEC [Concomitant]
     Active Substance: CETIRIZINE HYDROCHLORIDE
  17. VICODIN [Concomitant]
     Active Substance: ACETAMINOPHEN\HYDROCODONE BITARTRATE
  18. ALEVE [Concomitant]
     Active Substance: NAPROXEN SODIUM
  19. ALBUTEROL. [Concomitant]
     Active Substance: ALBUTEROL
  20. BISOPROLOL [Concomitant]
     Active Substance: BISOPROLOL
  21. INSULIN [Concomitant]
     Active Substance: INSULIN NOS
  22. MULTIVITAMIN [Concomitant]
     Active Substance: VITAMINS
  23. AMPICILLIN [Concomitant]
     Active Substance: AMPICILLIN
  24. CALCIUM CITRATE [Concomitant]
     Active Substance: CALCIUM CITRATE
  25. BYETTA [Suspect]
     Active Substance: EXENATIDE
     Route: 065
     Dates: start: 20070920
  26. ADVAIR HFA [Concomitant]
     Active Substance: FLUTICASONE PROPIONATE\SALMETEROL XINAFOATE
  27. BYETTA [Suspect]
     Active Substance: EXENATIDE
     Dosage: UNK
     Route: 065
     Dates: start: 20080825, end: 20120213
  28. LEVEMIR [Concomitant]
     Active Substance: INSULIN DETEMIR
  29. VITAMIN D [Concomitant]
     Active Substance: CHOLECALCIFEROL

REACTIONS (4)
  - Metastases to peritoneum [Unknown]
  - Pancreatitis chronic [Unknown]
  - Ascites [Unknown]
  - Pancreatic carcinoma metastatic [Fatal]

NARRATIVE: CASE EVENT DATE: 201104
